FAERS Safety Report 6075583-9 (Version None)
Quarter: 2009Q1

REPORT INFORMATION
  Report Type: 
  Country: None (occurrence: None)
  Receive Date: 20090212
  Receipt Date: 20090205
  Transmission Date: 20090719
  Serious: Yes (Hospitalization)
  Sender: FDA-Public Use
  Company Number: US-ELI_LILLY_AND_COMPANY-US200902001107

PATIENT
  Age: 5 Year
  Sex: Female

DRUGS (2)
  1. STRATTERA [Suspect]
     Indication: ATTENTION DEFICIT/HYPERACTIVITY DISORDER
     Dosage: UNK, UNKNOWN
     Route: 065
  2. INSULIN [Concomitant]
     Dosage: UNK, UNKNOWN
     Route: 065

REACTIONS (9)
  - BLOOD GLUCOSE FLUCTUATION [None]
  - DEHYDRATION [None]
  - DRUG INEFFECTIVE [None]
  - FROSTBITE [None]
  - MANIA [None]
  - PSYCHOMOTOR HYPERACTIVITY [None]
  - RASH [None]
  - VIRAL INFECTION [None]
  - VOMITING [None]
